FAERS Safety Report 18079774 (Version 1)
Quarter: 2020Q3

REPORT INFORMATION
  Report Type: Report from Study
  Country: US (occurrence: US)
  Receive Date: 20200728
  Receipt Date: 20200728
  Transmission Date: 20201103
  Serious: Yes (Other)
  Sender: FDA-Public Use
  Company Number: US-PFIZER INC-2020267708

PATIENT
  Sex: Male

DRUGS (7)
  1. RIFABUTIN. [Suspect]
     Active Substance: RIFABUTIN
     Dosage: 2100 MG, DAILY (WEEK 18)
     Route: 048
  2. RIFABUTIN. [Suspect]
     Active Substance: RIFABUTIN
     Dosage: 2250 MG, DAILY (WEEK 19)
     Route: 048
  3. RIFABUTIN. [Suspect]
     Active Substance: RIFABUTIN
     Dosage: 1800 MG, DAILY (WEEK 14)
     Route: 048
  4. RIFABUTIN. [Suspect]
     Active Substance: RIFABUTIN
     Dosage: DAILY DOSE WAS ESCALATED BY 150 MG EVERY 2 WEEKS
     Route: 048
  5. RIFABUTIN. [Suspect]
     Active Substance: RIFABUTIN
     Dosage: 1350 MG, DAILY
     Route: 048
  6. RIFABUTIN. [Suspect]
     Active Substance: RIFABUTIN
     Dosage: 2400 MG, DAILY (MAXIMUM DOSE)
     Route: 048
  7. RIFABUTIN. [Suspect]
     Active Substance: RIFABUTIN
     Dosage: ESCALATED FROM 300 OR 450 MG THROUGH THREE 150 MG/DAY INCREMENTS OVER A PERIOD OF 24 WEEKS
     Route: 048

REACTIONS (3)
  - Uveitis [Recovered/Resolved]
  - Panophthalmitis [Recovered/Resolved]
  - Blindness [Recovered/Resolved]
